FAERS Safety Report 7450311-0 (Version None)
Quarter: 2011Q2

REPORT INFORMATION
  Report Type: 
  Country: None (occurrence: None)
  Receive Date: 20110422
  Receipt Date: 20110413
  Transmission Date: 20111010
  Serious: Yes (Death, Other)
  Sender: FDA-Public Use
  Company Number: LEO-2011-00336

PATIENT
  Age: 52 Year
  Sex: Male

DRUGS (1)
  1. INNOHEP [Suspect]
     Indication: JUGULAR VEIN THROMBOSIS
     Dosage: 1 DOSAGE FORMS (1 IN 1 D),SUBCUTANEOUS
     Route: 058

REACTIONS (1)
  - HEPARIN-INDUCED THROMBOCYTOPENIA [None]
